FAERS Safety Report 14396062 (Version 2)
Quarter: 2018Q1

REPORT INFORMATION
  Report Type: Spontaneous
  Country: SE (occurrence: SE)
  Receive Date: 20180116
  Receipt Date: 20180226
  Transmission Date: 20180509
  Serious: Yes (Other)
  Sender: FDA-Public Use
  Company Number: SE-NOVOPROD-580519

PATIENT
  Age: 2 Day
  Sex: Male
  Weight: 3.5 kg

DRUGS (3)
  1. TRESIBA PENFILL [Suspect]
     Active Substance: INSULIN DEGLUDEC
     Indication: TYPE 1 DIABETES MELLITUS
     Dosage: 24 IU, QD
     Route: 064
  2. NIFEREX                            /00023531/ [Concomitant]
     Dosage: UNK
     Route: 064
  3. HUMALOG [Concomitant]
     Active Substance: INSULIN LISPRO
     Indication: TYPE 1 DIABETES MELLITUS
     Dosage: 40 IU, QD
     Route: 064

REACTIONS (3)
  - Foetal exposure during pregnancy [Recovered/Resolved]
  - Hypoglycaemic seizure [Unknown]
  - Neonatal asphyxia [Unknown]

NARRATIVE: CASE EVENT DATE: 20151201
